FAERS Safety Report 16527744 (Version 1)
Quarter: 2019Q3

REPORT INFORMATION
  Report Type: Spontaneous
  Country: FR (occurrence: FR)
  Receive Date: 20190703
  Receipt Date: 20190703
  Transmission Date: 20191004
  Serious: Yes (Other)
  Sender: FDA-Public Use
  Company Number: PHHY2019FR149826

PATIENT
  Age: 40 Year
  Sex: Female

DRUGS (3)
  1. PACLITAXEL. [Suspect]
     Active Substance: PACLITAXEL
     Indication: INVASIVE DUCTAL BREAST CARCINOMA
     Dosage: UNK (12 INJECTIONS)
     Route: 065
     Dates: start: 201612
  2. CYCLOPHOSPHAMIDE. [Suspect]
     Active Substance: CYCLOPHOSPHAMIDE
     Indication: INVASIVE DUCTAL BREAST CARCINOMA
     Dosage: 750 MG/M2, UNK
     Route: 065
     Dates: start: 201612
  3. EPIRUBICIN [Suspect]
     Active Substance: EPIRUBICIN
     Indication: INVASIVE DUCTAL BREAST CARCINOMA
     Dosage: 75 MG/M2, UNK M2 (TOTAL CUMULATIVE DOSE OF 300 MG/M2)
     Route: 065
     Dates: start: 201612

REACTIONS (5)
  - Toxicity to various agents [Unknown]
  - Cough [Unknown]
  - Anaemia [Unknown]
  - Interstitial lung disease [Unknown]
  - Dyspnoea [Unknown]

NARRATIVE: CASE EVENT DATE: 201705
